FAERS Safety Report 9077239 (Version 1)
Quarter: 2013Q1

REPORT INFORMATION
  Report Type: Report from Study
  Country: US (occurrence: US)
  Receive Date: 20130129
  Receipt Date: 20130129
  Transmission Date: 20140127
  Serious: Yes (Other)
  Sender: FDA-Public Use
  Company Number: US-ABBOTT-12P-163-0948041-00

PATIENT
  Age: 63 None
  Sex: Female
  Weight: 81.72 kg

DRUGS (2)
  1. HUMIRA 40 MG/0.8 ML PEN [Suspect]
     Indication: RHEUMATOID ARTHRITIS
     Dates: start: 20111212, end: 201201
  2. HUMIRA 40 MG/0.8 ML PEN [Suspect]
     Dates: start: 201202

REACTIONS (4)
  - Fall [Recovered/Resolved]
  - Abscess limb [Recovered/Resolved]
  - Pelvic fracture [Recovered/Resolved]
  - Cystitis [Recovered/Resolved]
